FAERS Safety Report 5643610-6 (Version None)
Quarter: 2008Q1

REPORT INFORMATION
  Report Type: 
  Country: None (occurrence: None)
  Receive Date: 20080228
  Receipt Date: 20080220
  Transmission Date: 20080703
  Serious: Yes (Other)
  Sender: FDA-Public Use
  Company Number: US-PFIZER INC-2007092676

PATIENT
  Sex: Male
  Weight: 134.3 kg

DRUGS (1)
  1. CADUET [Suspect]
     Dosage: TEXT:5/20
     Dates: start: 20051001, end: 20061001

REACTIONS (2)
  - IGA NEPHROPATHY [None]
  - RENAL IMPAIRMENT [None]
